FAERS Safety Report 8282699-5 (Version None)
Quarter: 2012Q2

REPORT INFORMATION
  Report Type: 
  Country: None (occurrence: None)
  Receive Date: 20120413
  Receipt Date: 20120404
  Transmission Date: 20120825
  Serious: Yes (Hospitalization)
  Sender: FDA-Public Use
  Company Number: JP-ROCHE-1047440

PATIENT
  Sex: Male

DRUGS (2)
  1. LUCENTIS [Suspect]
     Indication: AGE-RELATED MACULAR DEGENERATION
     Route: 050
     Dates: start: 20120112, end: 20120112
  2. LEVOFLOXACIN [Concomitant]
     Dates: start: 20120101, end: 20120101

REACTIONS (1)
  - CEREBRAL ARTERY THROMBOSIS [None]
